FAERS Safety Report 5849305-8 (Version None)
Quarter: 2008Q3

REPORT INFORMATION
  Report Type: 
  Country: None (occurrence: None)
  Receive Date: 20080815
  Receipt Date: 20080731
  Transmission Date: 20090109
  Serious: Yes (Hospitalization, Other)
  Sender: FDA-Public Use
  Company Number: 2008S1008345

PATIENT
  Age: 61 Year
  Sex: Female
  Weight: 90.7194 kg

DRUGS (12)
  1. BYSTOLIC [Suspect]
     Indication: HYPERTENSION
     Dosage: 5 MG;DAILY;ORAL, 5 MG;TWICE A DAY;ORAL, 10 MG;TWICE A DAY;ORAL
     Route: 048
     Dates: start: 20080214, end: 20080401
  2. BYSTOLIC [Suspect]
     Indication: HYPERTENSION
     Dosage: 5 MG;DAILY;ORAL, 5 MG;TWICE A DAY;ORAL, 10 MG;TWICE A DAY;ORAL
     Route: 048
     Dates: start: 20080407, end: 20080512
  3. BYSTOLIC [Suspect]
     Indication: HYPERTENSION
     Dosage: 5 MG;DAILY;ORAL, 5 MG;TWICE A DAY;ORAL, 10 MG;TWICE A DAY;ORAL
     Route: 048
     Dates: start: 20080512, end: 20080513
  4. VALIUM [Concomitant]
  5. PREVACID [Concomitant]
  6. LOMOTIL /00172302/ [Concomitant]
  7. BENTYL [Concomitant]
  8. AVAPRO [Concomitant]
  9. ZYRTEC [Concomitant]
  10. LANTUS [Concomitant]
  11. HUMALOG [Concomitant]
  12. ZADITOR /00495202/ [Concomitant]

REACTIONS (15)
  - APHASIA [None]
  - ASTHENIA [None]
  - BLOOD GLUCOSE INCREASED [None]
  - BLOOD PRESSURE FLUCTUATION [None]
  - CARDIAC MURMUR [None]
  - CEREBROVASCULAR ACCIDENT [None]
  - DIARRHOEA [None]
  - DRUG INTOLERANCE [None]
  - HEADACHE [None]
  - LACTOSE INTOLERANCE [None]
  - MIGRAINE [None]
  - PRURITUS GENERALISED [None]
  - RASH [None]
  - SPEECH DISORDER [None]
  - VOMITING [None]
